FAERS Safety Report 21621103 (Version 1)
Quarter: 2022Q4

REPORT INFORMATION
  Report Type: Spontaneous
  Country: US (occurrence: None)
  Receive Date: 20221118
  Receipt Date: 20221118
  Transmission Date: 20230113
  Serious: Yes (Hospitalization)
  Sender: FDA-Public Use
  Company Number: None

PATIENT
  Age: 55 Year
  Sex: Female
  Weight: 68.95 kg

DRUGS (17)
  1. NIVESTYM [Suspect]
     Active Substance: FILGRASTIM-AAFI
     Indication: Breast cancer female
     Dosage: OTHER STRENGTH : 300MCG/0.5ML;?FREQUENCY : DAILY;?
     Route: 058
     Dates: start: 202211
  2. AUGMENTIN [Concomitant]
     Active Substance: AMOXICILLIN\CLAVULANATE POTASSIUM
  3. CARBOPLATIN [Concomitant]
     Active Substance: CARBOPLATIN
  4. DEXAMETHASONE [Concomitant]
     Active Substance: DEXAMETHASONE
  5. DIPHENHYDRAMINE [Concomitant]
     Active Substance: DIPHENHYDRAMINE
  6. FAMOTIDINE [Concomitant]
     Active Substance: FAMOTIDINE
  7. IBUPROFEN [Concomitant]
     Active Substance: IBUPROFEN
  8. KEYTRUDA [Concomitant]
     Active Substance: PEMBROLIZUMAB
  9. ONDANSETRON [Concomitant]
     Active Substance: ONDANSETRON
  10. PACLITAXEL [Concomitant]
     Active Substance: PACLITAXEL
  11. PEPCID [Concomitant]
     Active Substance: FAMOTIDINE
  12. PROCHLORPERAZINE [Concomitant]
     Active Substance: PROCHLORPERAZINE
  13. SYEDA [Concomitant]
     Active Substance: DROSPIRENONE\ETHINYL ESTRADIOL
  14. SYNTHROID [Concomitant]
     Active Substance: LEVOTHYROXINE SODIUM
  15. DEXAMETHASONE\TOBRAMYCIN [Concomitant]
     Active Substance: DEXAMETHASONE\TOBRAMYCIN
  16. TYLENOL [Concomitant]
     Active Substance: ACETAMINOPHEN
  17. XANAX [Concomitant]
     Active Substance: ALPRAZOLAM

REACTIONS (1)
  - Drug hypersensitivity [None]
